FAERS Safety Report 23504714 (Version 1)
Quarter: 2024Q1

REPORT INFORMATION
  Report Type: Spontaneous
  Country: US (occurrence: US)
  Receive Date: 20240209
  Receipt Date: 20240209
  Transmission Date: 20240409
  Serious: No
  Sender: FDA-Public Use
  Company Number: US-JNJFOC-20240185261

PATIENT
  Age: 7 Year
  Sex: Male
  Weight: 24.97 kg

DRUGS (1)
  1. INVEGA [Suspect]
     Active Substance: PALIPERIDONE
     Indication: Autism spectrum disorder
     Route: 048

REACTIONS (3)
  - Abdominal pain [Unknown]
  - Insomnia [Unknown]
  - Off label use [Unknown]
